FAERS Safety Report 23070100 (Version 2)
Quarter: 2023Q4

REPORT INFORMATION
  Report Type: Spontaneous
  Country: JP (occurrence: JP)
  Receive Date: 20231016
  Receipt Date: 20231205
  Transmission Date: 20240110
  Serious: Yes (Hospitalization)
  Sender: FDA-Public Use
  Company Number: JP-ARGENX-2023-ARGX-JP003475

PATIENT

DRUGS (4)
  1. VYVGART [Suspect]
     Active Substance: EFGARTIGIMOD ALFA-FCAB
     Indication: Myasthenia gravis
     Dosage: 10 MG/KG
     Route: 041
     Dates: start: 20230511
  2. VYVGART [Suspect]
     Active Substance: EFGARTIGIMOD ALFA-FCAB
     Dosage: 10 MG/KG
     Route: 041
     Dates: start: 20231005
  3. VYVGART [Suspect]
     Active Substance: EFGARTIGIMOD ALFA-FCAB
     Dosage: 10 MG/KG
     Route: 041
     Dates: start: 20231109
  4. CYMBALTA [Suspect]
     Active Substance: DULOXETINE HYDROCHLORIDE
     Indication: Spinal osteoarthritis
     Dosage: UNK
     Route: 065
     Dates: start: 20231002

REACTIONS (1)
  - Diarrhoea [Recovered/Resolved]

NARRATIVE: CASE EVENT DATE: 20231003
